FAERS Safety Report 17374675 (Version 2)
Quarter: 2020Q2

REPORT INFORMATION
  Report Type: Spontaneous
  Country: IT (occurrence: IT)
  Receive Date: 20200206
  Receipt Date: 20200415
  Transmission Date: 20200713
  Serious: Yes (Other)
  Sender: FDA-Public Use
  Company Number: IT-TEVA-2020-IT-1182043

PATIENT
  Age: 80 Year
  Sex: Female

DRUGS (12)
  1. GABAPENTIN. [Suspect]
     Active Substance: GABAPENTIN
     Indication: PRODUCT USED FOR UNKNOWN INDICATION
     Dosage: 1800 MG
     Route: 048
     Dates: start: 20190101, end: 20191208
  2. LIORESAL 25 MG COMPRESSE [Concomitant]
     Dosage: 3 DOSAGE FORMS
     Route: 048
  3. DILZENE 60 MG COMPRESSE A RILASCIO MODIFICATO [Concomitant]
     Active Substance: DILTIAZEM HYDROCHLORIDE
     Dosage: 3 DOSAGE FORMS
     Route: 048
  4. PALEXIA [Suspect]
     Active Substance: TAPENTADOL HYDROCHLORIDE
     Indication: PAIN
     Dosage: 2 DOSAGE FORMS
     Route: 048
     Dates: start: 20190101, end: 20191208
  5. HALCION [Suspect]
     Active Substance: TRIAZOLAM
     Indication: INSOMNIA
     Route: 048
     Dates: start: 20190101, end: 20191208
  6. TORVAST [Concomitant]
     Active Substance: ATORVASTATIN
     Dosage: 10 IU/KG
     Route: 048
  7. MEDROL 16 MG COMPRESSE [Concomitant]
     Route: 048
  8. TAREG 80 MG COMPRESSE RIVESTITE CON FILM [Concomitant]
     Route: 048
  9. CEFTRIAXONE. [Concomitant]
     Active Substance: CEFTRIAXONE
     Dosage: 2 GRAM
     Route: 048
  10. XANAX [Suspect]
     Active Substance: ALPRAZOLAM
     Indication: ANXIETY
     Dosage: 2 DOSAGE FORMS
     Route: 048
     Dates: start: 20190101, end: 20191208
  11. PRADAXA [Concomitant]
     Active Substance: DABIGATRAN ETEXILATE MESYLATE
     Route: 048
  12. CIPRALEX [Suspect]
     Active Substance: ESCITALOPRAM OXALATE
     Indication: DEPRESSION
     Route: 048
     Dates: start: 20190101, end: 20191208

REACTIONS (2)
  - Sopor [Recovering/Resolving]
  - Overdose [Recovering/Resolving]

NARRATIVE: CASE EVENT DATE: 20191208
